FAERS Safety Report 7557226-8 (Version None)
Quarter: 2011Q2

REPORT INFORMATION
  Report Type: 
  Country: None (occurrence: None)
  Receive Date: 20110620
  Receipt Date: 20110225
  Transmission Date: 20111010
  Serious: No
  Sender: FDA-Public Use
  Company Number: US-MYLANLABS-2011S1004032

PATIENT
  Age: 67 Year
  Sex: Female

DRUGS (10)
  1. PERFOROMIST [Suspect]
     Indication: CHRONIC OBSTRUCTIVE PULMONARY DISEASE
     Route: 055
     Dates: start: 20110221
  2. BUDESONIDE [Concomitant]
  3. BENAZEPRIL HYDROCHLORIDE [Concomitant]
  4. FUROSEMIDE [Concomitant]
  5. VALIUM [Concomitant]
  6. SINGULAIR [Concomitant]
  7. LEVOTHYROXINE SODIUM [Concomitant]
  8. GLIMEPIRIDE [Concomitant]
  9. FENOFIBRATE [Concomitant]
  10. METOPROLOL TARTRATE [Concomitant]

REACTIONS (1)
  - NAUSEA [None]
